FAERS Safety Report 8956532 (Version 1)
Quarter: 2012Q4

REPORT INFORMATION
  Report Type: 
  Country: BR (occurrence: BR)
  Receive Date: 20121210
  Receipt Date: 20121210
  Transmission Date: 20130627
  Serious: Yes (Other)
  Sender: FDA-Public Use
  Company Number: BR-AMGEN-BRASP2012069986

PATIENT
  Age: 25 Year
  Sex: Female
  Weight: 60 kg

DRUGS (2)
  1. ENBREL [Suspect]
     Indication: RHEUMATOID ARTHRITIS
     Dosage: 50 mg, once weekly
     Route: 058
     Dates: start: 20121008, end: 20121119
  2. PRELONE                            /00016201/ [Concomitant]
     Indication: PAIN
     Dosage: UNK

REACTIONS (7)
  - Swelling face [Unknown]
  - Rash macular [Unknown]
  - Gastritis [Unknown]
  - Pruritus generalised [Unknown]
  - Haematoma [Unknown]
  - Injection site erythema [Unknown]
  - Injection site warmth [Not Recovered/Not Resolved]
